FAERS Safety Report 10086379 (Version 1)
Quarter: 2014Q2

REPORT INFORMATION
  Report Type: Spontaneous
  Country: US (occurrence: US)
  Receive Date: 20140418
  Receipt Date: 20140418
  Transmission Date: 20141212
  Serious: Yes (Other)
  Sender: FDA-Public Use
  Company Number: US-PFIZER INC-2014109387

PATIENT
  Age: 52 Year
  Sex: Female
  Weight: 64.4 kg

DRUGS (1)
  1. CHANTIX [Suspect]
     Indication: SMOKING CESSATION THERAPY
     Dosage: UNK
     Dates: start: 20140401, end: 20140409

REACTIONS (6)
  - Viral infection [Recovered/Resolved]
  - Dehydration [Recovered/Resolved]
  - Malaise [Unknown]
  - Nausea [Unknown]
  - Pyrexia [Unknown]
  - Anxiety [Unknown]
